FAERS Safety Report 9167653 (Version 1)
Quarter: 2013Q1

REPORT INFORMATION
  Report Type: Spontaneous
  Country: US (occurrence: None)
  Receive Date: 20130304
  Receipt Date: 20130304
  Transmission Date: 20140127
  Serious: No
  Sender: FDA-Public Use
  Company Number: AXC-2013-000073

PATIENT
  Age: 38 Year
  Sex: Male
  Weight: 50.1 kg

DRUGS (11)
  1. BENTYL [Suspect]
     Indication: PRODUCT USED FOR UNKNOWN INDICATION
  2. BLINDED THERAPY (USTEKINUMAB OR PLACEBO) (INFUSION) [Suspect]
     Indication: CROHN^S DISEASE
     Route: 042
     Dates: start: 20120419
  3. BLINDED THERAPY (USTEKINUMAB OR PLACEBO) (INFUSION) [Suspect]
     Indication: NAUSEA
     Route: 042
     Dates: start: 20120419
  4. USTEKINUMAB [Suspect]
     Indication: CROHN^S DISEASE
     Dosage: UNK 1 IN 4 WEEK,
     Dates: start: 20120614
  5. USTEKINUMAB [Suspect]
     Indication: NAUSEA
     Dosage: UNK 1 IN 4 WEEK,
     Dates: start: 20120614
  6. ZOFRAN (ONDANSETRON) [Concomitant]
  7. ZANTAC (RANITIDINE HYDROCHLORIDE) [Concomitant]
  8. DILAUDID (HYDROMORPHONE HYDROCHLORIDE) INJECTION [Concomitant]
  9. PRILOSEC [Concomitant]
  10. TORADOL (KETOROLAC TROMETHAMINE) [Concomitant]
  11. ATIVAN (LORAZEPAM) [Concomitant]

REACTIONS (11)
  - Hallucination [None]
  - Mood swings [None]
  - Feeling of despair [None]
  - Irritability [None]
  - Halo vision [None]
  - Dizziness [None]
  - Myalgia [None]
  - Headache [None]
  - Increased appetite [None]
  - Panic attack [None]
  - Depression [None]
